FAERS Safety Report 11716466 (Version 2)
Quarter: 2015Q4

REPORT INFORMATION
  Report Type: Spontaneous
  Country: US (occurrence: US)
  Receive Date: 20151104
  Receipt Date: 20151110
  Transmission Date: 20160304
  Serious: No
  Sender: FDA-Public Use
  Company Number: US-ELI_LILLY_AND_COMPANY-US201104003423

PATIENT
  Age: 64 Year
  Sex: Female

DRUGS (30)
  1. FORTEO [Suspect]
     Active Substance: TERIPARATIDE
     Dosage: 20 UG, QD
  2. NEURONTIN [Concomitant]
     Active Substance: GABAPENTIN
     Dosage: 600 MG, OTHER
  3. LEXAPRO [Concomitant]
     Active Substance: ESCITALOPRAM OXALATE
     Dosage: 30 MG, QD
  4. WELLBUTRIN [Concomitant]
     Active Substance: BUPROPION HYDROCHLORIDE
     Dosage: 100 MG, QD
  5. FENTANYL. [Concomitant]
     Active Substance: FENTANYL
  6. PROTONIX [Concomitant]
     Active Substance: PANTOPRAZOLE SODIUM
  7. PHENERGAN [Concomitant]
     Active Substance: PROMETHAZINE HYDROCHLORIDE
  8. KEFLEX [Concomitant]
     Active Substance: CEPHALEXIN
  9. ZANAFLEX [Concomitant]
     Active Substance: TIZANIDINE HYDROCHLORIDE
     Dosage: 4 MG, TID
  10. VITAMIN D [Concomitant]
     Active Substance: CHOLECALCIFEROL
     Dosage: 2000 IU, QD
  11. AMBIEN [Concomitant]
     Active Substance: ZOLPIDEM TARTRATE
     Dosage: UNK, QD
  12. FORTEO [Suspect]
     Active Substance: TERIPARATIDE
     Dosage: 20 UG, QD
  13. MOBIC [Concomitant]
     Active Substance: MELOXICAM
  14. LEVOTHYROXIN [Concomitant]
     Active Substance: LEVOTHYROXINE
     Dosage: 75 UG, QD
  15. SULFA                              /00150702/ [Concomitant]
     Active Substance: UNSPECIFIED INGREDIENT
  16. BACTRIM [Concomitant]
     Active Substance: SULFAMETHOXAZOLE\TRIMETHOPRIM
  17. GABAPENTIN. [Concomitant]
     Active Substance: GABAPENTIN
  18. CIPRO [Concomitant]
     Active Substance: CIPROFLOXACIN HYDROCHLORIDE
  19. DURAGESIC [Concomitant]
     Active Substance: FENTANYL
  20. SYNTHROID [Concomitant]
     Active Substance: LEVOTHYROXINE SODIUM
     Dosage: 75 UG, QD
  21. MELOXICAM. [Concomitant]
     Active Substance: MELOXICAM
     Dosage: UNK, QD
  22. SERAX [Concomitant]
     Active Substance: OXAZEPAM
     Dosage: 10 MG, BID
  23. FORTEO [Suspect]
     Active Substance: TERIPARATIDE
     Dosage: 20 UG, QD
  24. PRILOSEC [Concomitant]
     Active Substance: OMEPRAZOLE MAGNESIUM
     Dosage: 20 MG, BID
  25. LEXAPRO [Concomitant]
     Active Substance: ESCITALOPRAM OXALATE
     Dosage: 20 MG, QD
  26. LORTAB [Concomitant]
     Active Substance: ACETAMINOPHEN\HYDROCODONE BITARTRATE
  27. FORTEO [Suspect]
     Active Substance: TERIPARATIDE
     Indication: OSTEOPOROSIS
     Dosage: 20 UG, QD
     Route: 065
     Dates: start: 20110401
  28. FORTEO [Suspect]
     Active Substance: TERIPARATIDE
     Dosage: 20 UG, QD
  29. FORTEO [Suspect]
     Active Substance: TERIPARATIDE
     Dosage: 20 UG, TOOK  2 DAYS SKIPPED 1
     Route: 065
  30. LUNESTA [Concomitant]
     Active Substance: ESZOPICLONE
     Dosage: 3 MG, QD

REACTIONS (29)
  - Sleep disorder [Unknown]
  - Asthenia [Unknown]
  - Memory impairment [Unknown]
  - Cardiac stress test abnormal [Unknown]
  - Kidney infection [Unknown]
  - Bladder pain [Unknown]
  - Fibromyalgia [Unknown]
  - Scoliosis [Unknown]
  - Muscular weakness [Unknown]
  - Nausea [Unknown]
  - Faeces discoloured [Recovered/Resolved]
  - Cellulitis [Unknown]
  - Nephrolithiasis [Not Recovered/Not Resolved]
  - Cystitis [Unknown]
  - Sciatica [Unknown]
  - Rheumatoid arthritis [Unknown]
  - Arthritis [Unknown]
  - Fall [Unknown]
  - Pain [Not Recovered/Not Resolved]
  - Renal pain [Unknown]
  - Faeces discoloured [Unknown]
  - Inappropriate schedule of drug administration [Unknown]
  - Atrioventricular block [Unknown]
  - Constipation [Unknown]
  - Injection site erythema [Recovered/Resolved]
  - Back pain [Unknown]
  - Hypoaesthesia [Unknown]
  - Arthralgia [Unknown]
  - Muscle spasms [Not Recovered/Not Resolved]

NARRATIVE: CASE EVENT DATE: 201204
